FAERS Safety Report 5725976-1 (Version None)
Quarter: 2008Q2

REPORT INFORMATION
  Report Type: 
  Country: None (occurrence: None)
  Receive Date: 20080502
  Receipt Date: 20080425
  Transmission Date: 20081010
  Serious: Yes (Hospitalization, Other)
  Sender: FDA-Public Use
  Company Number: ES-BRISTOL-MYERS SQUIBB COMPANY-14162853

PATIENT
  Age: 84 Year
  Sex: Male
  Weight: 75 kg

DRUGS (2)
  1. ERBITUX [Suspect]
     Dosage: ON 11-MAR-2008 THE FIRST INFUSION OF CETUXIMAB AT A WEEKLY DOSE OF 300 MG
     Route: 042
     Dates: start: 20080411, end: 20080411
  2. RADIATION THERAPY [Suspect]
     Dates: start: 20080411, end: 20080411

REACTIONS (2)
  - RENAL FAILURE ACUTE [None]
  - RHABDOMYOLYSIS [None]
